FAERS Safety Report 7752630-7 (Version None)
Quarter: 2011Q3

REPORT INFORMATION
  Report Type: 
  Country: None (occurrence: None)
  Receive Date: 20110915
  Receipt Date: 20110912
  Transmission Date: 20111222
  Serious: Yes (Hospitalization)
  Sender: FDA-Public Use
  Company Number: CA-ROCHE-605448

PATIENT
  Sex: Female
  Weight: 61 kg

DRUGS (9)
  1. TRASTUZUMAB [Suspect]
     Dosage: TOTAL DOSE REPORTED AS 370 MG, FORM : VIALS. MAINTENANCE DOSE. LAST DOSE PRIOR TO SAE: 15 DEC 2008.
     Route: 042
     Dates: start: 20081028
  2. TRASTUZUMAB [Suspect]
     Dosage: LOADING DOSE.
     Route: 042
  3. DOCETAXEL [Suspect]
     Dosage: FORM REPORTED AS VIALS AND TOTAL DOSE : 120 MG. LAST DOSE PRIOR TO SAE: 15 DEC 2008.
     Route: 042
     Dates: start: 20081028
  4. CARBOPLATIN [Suspect]
     Dosage: DOSAGE: 6 AUC AND TOTAL DOSE IS 800 MG, FORM : VIALS. LAST DOSE PRIOR TO SAE: 15 DEC 2008.
     Route: 042
     Dates: start: 20081028
  5. DIMETAPP [Concomitant]
     Dosage: DRUG: DIMETAP.
     Dates: start: 20081201
  6. GRAVOL TAB [Concomitant]
     Dosage: TDD : 50
     Dates: start: 20081222
  7. BEVACIZUMAB [Suspect]
     Dosage: FORM REPORTED AS VIALS. TOTAL DOSE: 925 MG. LAST DOSE PRIOR TO SAE: 15 DEC 2008.
     Route: 042
     Dates: start: 20081028
  8. IMODIUM [Concomitant]
     Dates: start: 20081222, end: 20081223
  9. AVAPRO [Concomitant]
     Dates: start: 20060901

REACTIONS (6)
  - PALMAR-PLANTAR ERYTHRODYSAESTHESIA SYNDROME [None]
  - RENAL FAILURE [None]
  - DEHYDRATION [None]
  - HYPOVOLAEMIA [None]
  - MUCOSAL INFLAMMATION [None]
  - DIARRHOEA [None]
